FAERS Safety Report 7229357-3 (Version None)
Quarter: 2011Q1

REPORT INFORMATION
  Report Type: 
  Country: None (occurrence: None)
  Receive Date: 20110117
  Receipt Date: 20101222
  Transmission Date: 20110831
  Serious: Yes (Hospitalization)
  Sender: FDA-Public Use
  Company Number: A0801189A

PATIENT
  Sex: Male
  Weight: 135 kg

DRUGS (10)
  1. TRICOR [Concomitant]
  2. NIASPAN [Concomitant]
  3. TICLID [Concomitant]
  4. GLYBURIDE [Concomitant]
  5. AVANDIA [Suspect]
     Indication: DIABETES MELLITUS
     Dosage: 4MG PER DAY
     Route: 048
     Dates: end: 20070101
  6. DESLORATADINE [Concomitant]
  7. FLONASE [Concomitant]
  8. METFORMIN HCL [Concomitant]
  9. DIOVAN [Concomitant]
  10. TOPROL-XL [Concomitant]

REACTIONS (2)
  - CORONARY ARTERY DISEASE [None]
  - CARDIAC FAILURE CONGESTIVE [None]
